FAERS Safety Report 20363062 (Version 1)
Quarter: 2022Q1

REPORT INFORMATION
  Report Type: Spontaneous
  Country: IT (occurrence: IT)
  Receive Date: 20220121
  Receipt Date: 20220121
  Transmission Date: 20220424
  Serious: Yes (Life-Threatening, Hospitalization)
  Sender: FDA-Public Use
  Company Number: IT-NOVARTISPH-NVSC2019IT039976

PATIENT
  Age: 76 Year
  Sex: Female

DRUGS (2)
  1. METHOTREXATE [Suspect]
     Active Substance: METHOTREXATE
     Indication: Rheumatoid arthritis
     Dosage: UNK
     Route: 065
     Dates: end: 201610
  2. PREDNISONE [Suspect]
     Active Substance: PREDNISONE
     Indication: Rheumatoid arthritis
     Dosage: 2.5 MG
     Route: 065

REACTIONS (15)
  - Whipple^s disease [Recovered/Resolved]
  - Diplopia [Recovering/Resolving]
  - Vertigo [Recovering/Resolving]
  - Posture abnormal [Recovering/Resolving]
  - Headache [Recovering/Resolving]
  - Dysmetria [Recovering/Resolving]
  - Altered state of consciousness [Recovering/Resolving]
  - Cranial nerve disorder [Recovered/Resolved]
  - Ataxia [Recovered/Resolved]
  - Tachycardia [Recovering/Resolving]
  - Miosis [Recovering/Resolving]
  - Encephalitis brain stem [Recovered/Resolved]
  - Monoparesis [Recovered/Resolved]
  - Quadriplegia [Recovered/Resolved]
  - Depressed level of consciousness [Recovered/Resolved]

NARRATIVE: CASE EVENT DATE: 20161001
